FAERS Safety Report 5891390-1 (Version None)
Quarter: 2008Q3

REPORT INFORMATION
  Report Type: 
  Country: None (occurrence: None)
  Receive Date: 20080918
  Receipt Date: 20080918
  Transmission Date: 20090109
  Serious: No
  Sender: FDA-Public Use
  Company Number: None

PATIENT
  Age: 58 Year
  Sex: Male
  Weight: 95.71 kg

DRUGS (1)
  1. METHOCARBAMOL [Suspect]
     Indication: PAIN
     Dosage: 500 MG PRN PO
     Route: 048
     Dates: start: 20080827, end: 20080906

REACTIONS (4)
  - DRUG ERUPTION [None]
  - NAUSEA [None]
  - RASH GENERALISED [None]
  - RASH MACULO-PAPULAR [None]
